FAERS Safety Report 10243359 (Version 1)
Quarter: 2014Q2

REPORT INFORMATION
  Report Type: Spontaneous
  Country: US (occurrence: None)
  Receive Date: 20140616
  Receipt Date: 20140616
  Transmission Date: 20141212
  Serious: Yes (Other)
  Sender: FDA-Public Use
  Company Number: 001749094A

PATIENT
  Sex: Female

DRUGS (5)
  1. PROACTIV SOLUTION RENEWING CLEANSER [Suspect]
     Indication: ACNE
     Dosage: ONCE DAILY DERMAL
     Dates: start: 20140520
  2. PROACTIV SOLUTION REPAIRING TREATMENT [Suspect]
     Indication: ACNE
     Dosage: ONCE DAILY DERMAL
     Dates: start: 20140520
  3. PROACTIV SOLUTION DEEP CLEANSING WASH [Suspect]
     Indication: ACNE
     Dosage: ONCE DAILY DERMAL
     Dates: start: 20140520
  4. PROACTIV SOLUTION ADVANCED DAILY OIL CONTROL [Suspect]
     Indication: ACNE
     Dosage: ONCE DAILY DERMAL
     Dates: start: 20140520
  5. PROACTIV SOLUTION OIL FREE MOISTURE SPF 15 [Suspect]
     Indication: ACNE
     Dosage: ONCE DAILY DERMAL
     Dates: start: 20140520

REACTIONS (4)
  - Erythema [None]
  - Pruritus [None]
  - Rash [None]
  - Swelling [None]
